FAERS Safety Report 8041551-0 (Version None)
Quarter: 2012Q1

REPORT INFORMATION
  Report Type: 
  Country: None (occurrence: None)
  Receive Date: 20120112
  Receipt Date: 20111231
  Transmission Date: 20120608
  Serious: Yes (Life-Threatening, Hospitalization)
  Sender: FDA-Public Use
  Company Number: US-PFIZER INC-2012000033

PATIENT
  Sex: Male
  Weight: 60.317 kg

DRUGS (11)
  1. PF-00299804 [Suspect]
     Indication: NON-SMALL CELL LUNG CANCER
     Dosage: 30 MG, 1X/DAY
     Route: 048
     Dates: start: 20110608, end: 20111217
  2. IMODIUM [Concomitant]
     Indication: PROPHYLAXIS AGAINST DIARRHOEA
     Dosage: UNK
     Dates: start: 20110618
  3. MINOCYCLINE [Concomitant]
     Indication: RASH
     Dosage: UNK
     Dates: start: 20111213
  4. CRIZOTINIB [Suspect]
     Indication: NON-SMALL CELL LUNG CANCER
     Dosage: 200 MG, 2X/DAY
     Route: 048
     Dates: start: 20111122, end: 20111220
  5. OXYGEN [Concomitant]
     Indication: DYSPNOEA
     Dosage: UNK
     Dates: start: 20111221
  6. PREDNISONE [Concomitant]
     Indication: INFECTION
     Dosage: UNK
     Dates: start: 20111219
  7. FRAGMIN [Concomitant]
     Indication: PULMONARY EMBOLISM
     Dosage: UNK
     Dates: start: 20111221
  8. IBUPROFEN [Concomitant]
     Indication: PAIN
     Dosage: UNK
     Dates: start: 19950101
  9. HYDROCORTISONE [Concomitant]
     Indication: RASH
     Dosage: UNK
     Dates: start: 20111004
  10. CALCIUM [Concomitant]
     Indication: SUPPLEMENTATION THERAPY
     Dosage: UNK
     Dates: start: 20091230
  11. CLINDAMYCIN [Concomitant]
     Indication: RASH
     Dosage: UNK
     Dates: start: 20110920

REACTIONS (1)
  - RESPIRATORY FAILURE [None]
